FAERS Safety Report 6804186-0 (Version None)
Quarter: 2010Q2

REPORT INFORMATION
  Report Type: 
  Country: None (occurrence: None)
  Receive Date: 20100628
  Receipt Date: 20070213
  Transmission Date: 20101027
  Serious: No
  Sender: FDA-Public Use
  Company Number: US-PFIZER INC-2007012182

PATIENT
  Sex: Female
  Weight: 56.25 kg

DRUGS (3)
  1. GEODON [Suspect]
     Indication: SCHIZOPHRENIA
     Dates: start: 20060501, end: 20061101
  2. LEVOXYL [Concomitant]
  3. VITAMINS [Concomitant]

REACTIONS (5)
  - NAUSEA [None]
  - NIGHT SWEATS [None]
  - PARAESTHESIA [None]
  - SWOLLEN TONGUE [None]
  - WEIGHT DECREASED [None]
